FAERS Safety Report 22093557 (Version 1)
Quarter: 2023Q1

REPORT INFORMATION
  Report Type: Spontaneous
  Country: US (occurrence: US)
  Receive Date: 20230314
  Receipt Date: 20230314
  Transmission Date: 20230417
  Serious: Yes (Other)
  Sender: FDA-Public Use
  Company Number: US-002147023-NVSC2023US058452

PATIENT
  Age: 6 Year
  Sex: Male

DRUGS (2)
  1. NELARABINE [Suspect]
     Active Substance: NELARABINE
     Indication: T-cell type acute leukaemia
     Dosage: UNK
     Route: 065
  2. NELARABINE [Suspect]
     Active Substance: NELARABINE
     Dosage: UNK, 2 ADDITIONAL 5 DAYS EVERY 28 DAYS
     Route: 065

REACTIONS (6)
  - Encephalopathy [Recovered/Resolved]
  - Hypersomnia [Recovered/Resolved]
  - Toxic leukoencephalopathy [Unknown]
  - T-cell type acute leukaemia [Unknown]
  - Malignant neoplasm progression [Unknown]
  - Drug ineffective [Unknown]
